FAERS Safety Report 9379555 (Version 3)
Quarter: 2013Q3

REPORT INFORMATION
  Report Type: Spontaneous
  Country: JP (occurrence: JP)
  Receive Date: 20130702
  Receipt Date: 20130723
  Transmission Date: 20140515
  Serious: Yes (Death)
  Sender: FDA-Public Use
  Company Number: JP-UCBSA-090088

PATIENT
  Age: 80 Year
  Sex: Male
  Weight: 53 kg

DRUGS (6)
  1. CIMZIA [Suspect]
     Indication: RHEUMATOID ARTHRITIS
     Dosage: 200 MG SYRINGE
     Route: 058
     Dates: start: 20130416, end: 20130416
  2. PREDONINE [Concomitant]
     Indication: RHEUMATOID ARTHRITIS
     Dosage: DAILY DOSE : 30 MG
     Route: 048
     Dates: start: 20061010
  3. PREDONINE [Concomitant]
     Indication: RHEUMATOID ARTHRITIS
     Dosage: DAILY DOSE : 2.5 MG
     Route: 048
  4. TOCILIZUMAB [Concomitant]
     Dates: start: 20110714, end: 20130416
  5. INFLIXIMAB [Concomitant]
     Dosage: UNKNOWN DOSE
     Dates: start: 20030630
  6. PROGRAF [Concomitant]
     Indication: RHEUMATOID ARTHRITIS
     Dosage: DAILY DOSE : 3 MG
     Route: 048
     Dates: start: 20111107, end: 20130521

REACTIONS (2)
  - Pulmonary fibrosis [Fatal]
  - Interstitial lung disease [Fatal]
